FAERS Safety Report 23907538 (Version 1)
Quarter: 2024Q2

REPORT INFORMATION
  Report Type: Spontaneous
  Country: FR (occurrence: FR)
  Receive Date: 20240528
  Receipt Date: 20240528
  Transmission Date: 20240716
  Serious: Yes (Other)
  Sender: FDA-Public Use
  Company Number: FR-AFSSAPS-TS2024000215

PATIENT
  Age: 55 Year
  Sex: Male

DRUGS (3)
  1. AZITHROMYCIN [Suspect]
     Active Substance: AZITHROMYCIN
     Indication: Otitis media
     Dosage: UNK
     Route: 048
     Dates: start: 201404, end: 201604
  2. PREDNISONE [Concomitant]
     Active Substance: PREDNISONE
     Indication: Asthma
     Dosage: 8 MILLIGRAM, DAILY
     Route: 048
     Dates: start: 2009
  3. BACTRIM [Concomitant]
     Active Substance: SULFAMETHOXAZOLE\TRIMETHOPRIM
     Indication: Selective IgG subclass deficiency
     Dosage: UNK
     Route: 048
     Dates: start: 201409, end: 201604

REACTIONS (2)
  - Condition aggravated [Not Recovered/Not Resolved]
  - Deafness bilateral [Not Recovered/Not Resolved]

NARRATIVE: CASE EVENT DATE: 20161101
